FAERS Safety Report 17849169 (Version 2)
Quarter: 2021Q3

REPORT INFORMATION
  Report Type: Spontaneous
  Country: FR (occurrence: FR)
  Receive Date: 20200602
  Receipt Date: 20210702
  Transmission Date: 20211014
  Serious: Yes (Other)
  Sender: FDA-Public Use
  Company Number: FR-SUN PHARMACEUTICAL INDUSTRIES LTD-2020RR-248750

PATIENT
  Age: 29 Year
  Sex: Female

DRUGS (3)
  1. ALPRAZOLAM. [Suspect]
     Active Substance: ALPRAZOLAM
     Indication: DRUG ABUSE
     Dosage: NON RENSEIGNEE ()
     Route: 065
     Dates: start: 202003
  2. ZOLPIDEM [Suspect]
     Active Substance: ZOLPIDEM TARTRATE
     Indication: DRUG ABUSE
     Dosage: NON RENSEIGNEE ()
     Route: 065
     Dates: start: 202003
  3. HAVLANE [Suspect]
     Active Substance: LOPRAZOLAM
     Indication: DRUG ABUSE
     Dosage: NON RENSEIGNEE ()
     Route: 065

REACTIONS (1)
  - Drug abuse [Not Recovered/Not Resolved]
